FAERS Safety Report 6925628-6 (Version None)
Quarter: 2010Q3

REPORT INFORMATION
  Report Type: 
  Country: None (occurrence: None)
  Receive Date: 20100816
  Receipt Date: 20100805
  Transmission Date: 20110219
  Serious: Yes (Hospitalization)
  Sender: FDA-Public Use
  Company Number: US-BAXTER-2010BH020944

PATIENT
  Age: 68 Year
  Sex: Male
  Weight: 83 kg

DRUGS (25)
  1. TISSEEL VH KIT [Suspect]
     Indication: HAEMOSTASIS
     Route: 061
     Dates: start: 20100715, end: 20100715
  2. TISSEEL VH KIT [Suspect]
     Route: 061
     Dates: start: 20100715, end: 20100715
  3. TISSEEL VH KIT [Suspect]
     Route: 061
     Dates: start: 20100715, end: 20100715
  4. METFORMIN [Concomitant]
     Route: 048
  5. METOPROLOL TARTRATE [Concomitant]
     Route: 048
  6. LISINOPRIL [Concomitant]
     Route: 048
  7. ACTOS [Concomitant]
     Route: 048
  8. LANTUS [Concomitant]
     Route: 030
  9. CRESTOR [Concomitant]
     Route: 048
  10. LASIX [Concomitant]
     Route: 048
  11. ZOSYN [Concomitant]
     Route: 042
     Dates: start: 20100702, end: 20100720
  12. KAY CIEL DURA-TABS [Concomitant]
     Indication: PROPHYLAXIS
     Route: 048
  13. AQUACEL [Concomitant]
     Route: 061
     Dates: start: 20100712, end: 20100720
  14. HEPARIN [Concomitant]
     Indication: PROPHYLAXIS
     Route: 042
     Dates: start: 20100712, end: 20100715
  15. PROTAMINE SULFATE [Concomitant]
     Indication: PROPHYLAXIS
     Route: 042
     Dates: start: 20100712, end: 20100715
  16. ENALAPRIL [Concomitant]
     Route: 042
     Dates: start: 20100715, end: 20100715
  17. HYDRALAZINE [Concomitant]
     Route: 042
     Dates: start: 20100715, end: 20100715
  18. MORPHINE [Concomitant]
     Indication: PROPHYLAXIS
     Route: 042
     Dates: start: 20100716, end: 20100719
  19. DIPHENHYDRAMINE HYDROCHLORIDE [Concomitant]
     Indication: PROPHYLAXIS
     Route: 042
     Dates: start: 20100712, end: 20100712
  20. MIDAZOLAM HCL [Concomitant]
     Indication: PROPHYLAXIS
     Route: 042
     Dates: start: 20100712, end: 20100712
  21. VICODIN [Concomitant]
     Route: 048
     Dates: start: 20100702, end: 20100714
  22. MAGNESIUM OXIDE [Concomitant]
     Indication: PROPHYLAXIS
     Route: 048
     Dates: start: 20100702, end: 20100719
  23. LACTATED RINGER'S [Concomitant]
     Indication: PROPHYLAXIS
     Route: 042
     Dates: start: 20100715, end: 20100715
  24. NOVOLOG [Concomitant]
     Route: 058
     Dates: start: 20100701
  25. PEPCID [Concomitant]
     Dates: start: 20100702, end: 20100702

REACTIONS (1)
  - WOUND INFECTION STAPHYLOCOCCAL [None]
